FAERS Safety Report 12010869 (Version 4)
Quarter: 2018Q1

REPORT INFORMATION
  Report Type: Report from Study
  Country: US (occurrence: US)
  Receive Date: 20160205
  Receipt Date: 20180221
  Transmission Date: 20180508
  Serious: Yes (Death, Hospitalization)
  Sender: FDA-Public Use
  Company Number: US-ACTELION-A-US2016-130899

PATIENT
  Age: 65 Year
  Sex: Male

DRUGS (4)
  1. TRACLEER [Suspect]
     Active Substance: BOSENTAN
     Indication: PULMONARY HYPERTENSION
     Dosage: 125 MG, BID
     Route: 048
  2. TYVASO [Concomitant]
     Active Substance: TREPROSTINIL
     Dosage: 9 BREATHS
     Dates: start: 20141007
  3. SILDENAFIL. [Concomitant]
     Active Substance: SILDENAFIL
     Indication: PULMONARY ARTERIAL HYPERTENSION
     Dosage: 20 MG, TID
     Dates: start: 201402
  4. SILDENAFIL. [Concomitant]
     Active Substance: SILDENAFIL
     Dosage: UNK
     Dates: start: 2015

REACTIONS (2)
  - Knee arthroplasty [Recovered/Resolved]
  - Death [Fatal]

NARRATIVE: CASE EVENT DATE: 20160126
